FAERS Safety Report 10392672 (Version 7)
Quarter: 2017Q1

REPORT INFORMATION
  Report Type: Spontaneous
  Country: US (occurrence: US)
  Receive Date: 20140819
  Receipt Date: 20170117
  Transmission Date: 20170428
  Serious: Yes (Hospitalization, Other)
  Sender: FDA-Public Use
  Company Number: US-PFIZER INC-2014131166

PATIENT
  Age: 66 Year
  Sex: Female

DRUGS (22)
  1. ABILIFY [Concomitant]
     Active Substance: ARIPIPRAZOLE
     Dosage: 5 MG, DAILY
     Dates: start: 2005
  2. CALCIUM 600 AND VITAMIN D [Concomitant]
     Dosage: 1 DF, 1X/DAY
  3. PROLIA [Concomitant]
     Active Substance: DENOSUMAB
     Dosage: 6 MG, UNK (1 INJECTION PER 6 MG)
  4. EFFEXOR XR [Suspect]
     Active Substance: VENLAFAXINE HYDROCHLORIDE
     Indication: DEPRESSION
     Dosage: 300 MG (2-150 MG), DAILY IN THE MORNING
     Route: 048
     Dates: start: 2005
  5. ABILIFY [Concomitant]
     Active Substance: ARIPIPRAZOLE
     Dosage: 5 MG, 1X/DAY (1 IN AM OR 4 PM)
  6. LAMICTAL [Concomitant]
     Active Substance: LAMOTRIGINE
     Dosage: 100 MG, DAILY, IN AM
     Dates: start: 2011
  7. CRESTOR [Concomitant]
     Active Substance: ROSUVASTATIN CALCIUM
     Dosage: 5 MG, DAILY BEFORE BED
     Dates: start: 2011
  8. CALCIUM + VITAMIN D3 [Concomitant]
     Active Substance: CALCIUM CARBONATE\CHOLECALCIFEROL
     Dosage: 1000 IU, 1X/DAY AT BED TIME
  9. CLONAZEPAM. [Concomitant]
     Active Substance: CLONAZEPAM
     Dosage: 1.5 MG (3-0.5MG), DAILY
     Dates: start: 2005
  10. NORCO [Concomitant]
     Active Substance: ACETAMINOPHEN\HYDROCODONE BITARTRATE
     Dosage: [HYDROCODONE BITARTRATE 7.5/ ACETAMINOPHEN 325], 1DF EVERY 6 HOURS
  11. VITAMIN D3 [Concomitant]
     Active Substance: CHOLECALCIFEROL
     Dosage: 2000 IU, 2X/DAY
  12. MUCINEX [Concomitant]
     Active Substance: GUAIFENESIN
     Dosage: 600 MG, 1X/DAY (AS NEEDED)
  13. PLAVIX [Concomitant]
     Active Substance: CLOPIDOGREL BISULFATE
     Dosage: 75 MG, DAILY IN AM
     Dates: start: 2011
  14. VITAMIN D3 [Concomitant]
     Active Substance: CHOLECALCIFEROL
     Dosage: 2000, 1 AT BED TIME
  15. ADVIL PM LIQUI-GELS [Concomitant]
     Active Substance: DIPHENHYDRAMINE HYDROCHLORIDE\IBUPROFEN
     Dosage: 200 MG, AS NEEDED (BETWEEN HYDRO/ACETA)
  16. CENTRUM SILVER +50 [Concomitant]
     Dosage: 1 DF, 1X/DAY AM
  17. EFFEXOR XR [Suspect]
     Active Substance: VENLAFAXINE HYDROCHLORIDE
     Dosage: 150 MG, 1X/DAY (2 IN AM)
     Route: 048
  18. CLONAZEPAM. [Concomitant]
     Active Substance: CLONAZEPAM
     Dosage: 0.5 MG, (2 TO 3 PER DAY, 1 AM, 1 4PM, 1 (LATE))
  19. SYMBICORT [Concomitant]
     Active Substance: BUDESONIDE\FORMOTEROL FUMARATE DIHYDRATE
     Dosage: [BUDESONIDE: 160, FORMOTEROL FUMARATE: 4.5], (1-2 PER DAY-PUFF (2))
  20. ALENDRONATE [Concomitant]
     Active Substance: ALENDRONATE SODIUM
     Dosage: 70 MG, WEEKLY
     Dates: start: 2011
  21. NORCO [Concomitant]
     Active Substance: ACETAMINOPHEN\HYDROCODONE BITARTRATE
     Dosage: [HYDROCODONE BITARTRATE 5/ ACETAMINOPHEN 325], ^1-2^ PER DAY
     Dates: start: 2014
  22. FISH OIL OMEGA 3 [Concomitant]
     Dosage: FISH OIL: 1200 MG+ OMEGA 3: 350 MG, 1X/DAY

REACTIONS (1)
  - Cerebrovascular accident [Not Recovered/Not Resolved]

NARRATIVE: CASE EVENT DATE: 201110
